FAERS Safety Report 7210001-6 (Version None)
Quarter: 2011Q1

REPORT INFORMATION
  Report Type: 
  Country: None (occurrence: None)
  Receive Date: 20110105
  Receipt Date: 20101221
  Transmission Date: 20110831
  Serious: No
  Sender: FDA-Public Use
  Company Number: US-BIOGENIDEC-2011BI000054

PATIENT
  Age: 51 Year
  Sex: Female

DRUGS (1)
  1. TYSABRI [Suspect]
     Indication: MULTIPLE SCLEROSIS
     Route: 042
     Dates: start: 20091015

REACTIONS (9)
  - DIARRHOEA [None]
  - FATIGUE [None]
  - PAIN [None]
  - EYE INFLAMMATION [None]
  - MEMORY IMPAIRMENT [None]
  - OCULAR HYPERAEMIA [None]
  - EYE PAIN [None]
  - BLOOD GLUCOSE DECREASED [None]
  - COLON POLYPECTOMY [None]
